FAERS Safety Report 9435721 (Version 1)
Quarter: 2013Q3

REPORT INFORMATION
  Report Type: Other
  Country: GB (occurrence: GB)
  Receive Date: 20130801
  Receipt Date: 20130801
  Transmission Date: 20140515
  Serious: Yes (Disabling, Other)
  Sender: FDA-Public Use
  Company Number: GB-JHP PHARMACEUTICALS, LLC-JHP201300477

PATIENT
  Age: 54 Year
  Sex: Female
  Weight: 60 kg

DRUGS (6)
  1. DANTRIUM [Suspect]
     Indication: MUSCLE SPASTICITY
     Dosage: 25 MG, DAILY
     Route: 048
     Dates: start: 20130621, end: 20130706
  2. CO-PROXAMOL [Concomitant]
  3. INSULIN ISOPHANE PORCINE [Concomitant]
  4. INSULIN PORCINE [Concomitant]
  5. LORATADINE [Concomitant]
  6. ORAMORPH [Concomitant]

REACTIONS (4)
  - Influenza like illness [Recovered/Resolved]
  - Dizziness exertional [Recovered/Resolved]
  - Insomnia [Recovering/Resolving]
  - Sweat gland disorder [Recovering/Resolving]
